FAERS Safety Report 21305252 (Version 1)
Quarter: 2022Q3

REPORT INFORMATION
  Report Type: Spontaneous
  Country: US (occurrence: None)
  Receive Date: 20220907
  Receipt Date: 20220907
  Transmission Date: 20221027
  Serious: No
  Sender: FDA-Public Use
  Company Number: None

PATIENT
  Age: 83 Year
  Sex: Male

DRUGS (1)
  1. ABIRATERONE [Suspect]
     Active Substance: ABIRATERONE
     Dosage: FREQUENCY : DAILY;?
     Route: 048

REACTIONS (7)
  - Fall [None]
  - Head injury [None]
  - Epistaxis [None]
  - Lip swelling [None]
  - Feeling abnormal [None]
  - Nervousness [None]
  - Dyspnoea [None]

NARRATIVE: CASE EVENT DATE: 20220901
